FAERS Safety Report 5499445-0 (Version None)
Quarter: 2007Q4

REPORT INFORMATION
  Report Type: 
  Country: None (occurrence: None)
  Receive Date: 20071026
  Receipt Date: 20071016
  Transmission Date: 20080405
  Serious: Yes (Hospitalization, Other)
  Sender: FDA-Public Use
  Company Number: ES-JNJFOC-20070404278

PATIENT
  Age: 44 Year
  Sex: Male

DRUGS (3)
  1. REMICADE [Suspect]
     Indication: CROHN'S DISEASE
     Route: 042
  2. DACORTIN [Concomitant]
     Indication: CROHN'S DISEASE
     Dosage: TAPERING DOSE SCHEDULE
  3. AZATHIOPRINE [Concomitant]

REACTIONS (3)
  - ENCEPHALITIS BRAIN STEM [None]
  - LISTERIOSIS [None]
  - MYELITIS [None]
